FAERS Safety Report 18261487 (Version 1)
Quarter: 2020Q3

REPORT INFORMATION
  Report Type: Report from Study
  Country: None (occurrence: CA)
  Receive Date: 20200914
  Receipt Date: 20200914
  Transmission Date: 20201103
  Serious: Yes (Other)
  Sender: FDA-Public Use
  Company Number: CA-ABBVIE-20K-028-3234467-00

PATIENT
  Sex: Female

DRUGS (1)
  1. HUMIRA [Suspect]
     Active Substance: ADALIMUMAB
     Indication: HIDRADENITIS
     Route: 058
     Dates: start: 20190802, end: 20200110

REACTIONS (7)
  - Atypical pneumonia [Recovering/Resolving]
  - Foreign body in eye [Unknown]
  - Ulcerative keratitis [Not Recovered/Not Resolved]
  - Abortion spontaneous [Unknown]
  - Medical procedure [Unknown]
  - Maternal exposure during pregnancy [Unknown]
  - Impaired healing [Unknown]
